FAERS Safety Report 23553330 (Version 1)
Quarter: 2024Q1

REPORT INFORMATION
  Report Type: Spontaneous
  Country: US (occurrence: US)
  Receive Date: 20240222
  Receipt Date: 20240222
  Transmission Date: 20240409
  Serious: No
  Sender: FDA-Public Use
  Company Number: US-PFIZER INC-PV202400024496

PATIENT
  Age: 60 Year
  Sex: Female

DRUGS (2)
  1. NURTEC ODT [Interacting]
     Active Substance: RIMEGEPANT SULFATE
     Indication: Migraine
     Dosage: DISSOLVE 1 TABLET ON OR UNDER THE TONGUE ONCE A DAY AT ONSET OF MIGRAINE AS NEEDED. MAX 1 TABLET PER
     Route: 060
  2. RIFAMPIN [Interacting]
     Active Substance: RIFAMPIN
     Indication: Infection
     Dosage: UNK

REACTIONS (2)
  - Drug ineffective [Unknown]
  - Labelled drug-drug interaction medication error [Unknown]
